FAERS Safety Report 18849331 (Version 1)
Quarter: 2021Q1

REPORT INFORMATION
  Report Type: Report from Study
  Country: US (occurrence: US)
  Receive Date: 20210205
  Receipt Date: 20210205
  Transmission Date: 20210419
  Serious: No
  Sender: FDA-Public Use
  Company Number: NVSC2021US021488

PATIENT
  Sex: Male

DRUGS (1)
  1. ENTRESTO [Suspect]
     Active Substance: SACUBITRIL\VALSARTAN
     Indication: PRODUCT USED FOR UNKNOWN INDICATION
     Dosage: 50 MG (24/2MG 2 PILLS IN AM)
     Route: 065

REACTIONS (8)
  - Erythema [Unknown]
  - Hypersensitivity [Unknown]
  - Product dispensing issue [Unknown]
  - Pruritus [Unknown]
  - Eczema [Unknown]
  - Blood pressure systolic decreased [Unknown]
  - Incorrect dose administered [Unknown]
  - Ejection fraction decreased [Unknown]
